FAERS Safety Report 8955521 (Version 1)
Quarter: 2012Q4

REPORT INFORMATION
  Report Type: Report from Study
  Country: DE (occurrence: DE)
  Receive Date: 20121207
  Receipt Date: 20121207
  Transmission Date: 20130627
  Serious: Yes (Hospitalization, Other)
  Sender: FDA-Public Use
  Company Number: DE-BAXTER-2012BAX025838

PATIENT
  Age: 67 Year
  Sex: Female
  Weight: 48 kg

DRUGS (13)
  1. ENDOXAN [Suspect]
     Indication: FOLLICULAR B-CELL NON-HODGKIN^S LYMPHOMA
     Route: 042
     Dates: start: 20091110
  2. ENDOXAN [Suspect]
     Route: 042
     Dates: start: 20091111
  3. FLUDARABINE [Suspect]
     Indication: FOLLICULAR B-CELL NON-HODGKIN^S LYMPHOMA
     Route: 042
     Dates: start: 20091110
  4. FLUDARABINE [Suspect]
     Route: 042
     Dates: start: 20091112
  5. URSOFALK [Concomitant]
     Indication: DRUG USE FOR UNKNOWN INDICATION
     Route: 065
  6. BISOPROLOL FUMARATE [Concomitant]
     Indication: DRUG USE FOR UNKNOWN INDICATION
     Route: 065
  7. AMLODIPINE BESILATE [Concomitant]
     Indication: DRUG USE FOR UNKNOWN INDICATION
     Route: 065
  8. SIMVASTATIN [Concomitant]
     Indication: DRUG USE FOR UNKNOWN INDICATION
     Route: 065
  9. ACETYLDIGOXIN [Concomitant]
     Indication: DRUG USE FOR UNKNOWN INDICATION
     Route: 065
  10. PANTOPRAZOLE [Concomitant]
     Indication: DRUG USE FOR UNKNOWN INDICATION
     Route: 065
  11. MORPHINE SULFATE [Concomitant]
     Indication: DRUG USE FOR UNKNOWN INDICATION
     Route: 065
     Dates: end: 20091215
  12. FENTANYL CITRATE [Concomitant]
     Indication: DRUG USE FOR UNKNOWN INDICATION
     Route: 065
     Dates: start: 20091215
  13. ESTRADIOL [Concomitant]
     Indication: DRUG USE FOR UNKNOWN INDICATION
     Route: 065

REACTIONS (2)
  - Squamous cell carcinoma [Unknown]
  - Infection [Recovered/Resolved]
